FAERS Safety Report 7326989-9 (Version None)
Quarter: 2011Q1

REPORT INFORMATION
  Report Type: 
  Country: None (occurrence: None)
  Receive Date: 20110302
  Receipt Date: 20110228
  Transmission Date: 20110831
  Serious: Yes (Hospitalization)
  Sender: FDA-Public Use
  Company Number: ES-PFIZER INC-2011013581

PATIENT
  Age: 82 Year
  Sex: Male

DRUGS (8)
  1. ADIRO [Interacting]
     Indication: ACUTE CORONARY SYNDROME
     Dosage: 100 MG, 1X/DAY
     Route: 048
     Dates: start: 20100706
  2. UNIKET [Interacting]
     Indication: ACUTE CORONARY SYNDROME
     Dosage: 80 MG, 1X/DAY
     Route: 048
     Dates: start: 20100706, end: 20100713
  3. TENORMIN [Interacting]
     Dosage: 50 MG, 1X/DAY
     Route: 048
     Dates: start: 20100706
  4. PANTOPRAZOL [Interacting]
     Indication: PROPHYLAXIS AGAINST GASTROINTESTINAL ULCER
     Dosage: 40 MG, 1X/DAY
     Route: 048
     Dates: start: 20100709
  5. DISTRANEURINE [Interacting]
     Indication: AGITATION
     Dosage: 384 MG, 1X/DAY
     Route: 048
     Dates: start: 20100706, end: 20100707
  6. PLAVIX [Interacting]
     Indication: ACUTE CORONARY SYNDROME
     Dosage: 75 MG, 1X/DAY
     Route: 048
     Dates: start: 20100709, end: 20100714
  7. NORVASC [Suspect]
     Indication: ANGINA PECTORIS
     Dosage: 10 MG, 1X/DAY
     Route: 048
     Dates: start: 20100706, end: 20100730
  8. CARDYL [Interacting]
     Indication: ACUTE CORONARY SYNDROME
     Dosage: 80 MG, 1X/DAY
     Route: 048
     Dates: start: 20100706, end: 20100712

REACTIONS (2)
  - DRUG INTERACTION [None]
  - HEPATITIS CHOLESTATIC [None]
